FAERS Safety Report 4450380-6 (Version None)
Quarter: 2004Q3

REPORT INFORMATION
  Report Type: 
  Country: None (occurrence: None)
  Receive Date: 20040915
  Receipt Date: 20031124
  Transmission Date: 20050211
  Serious: Yes (Life-Threatening)
  Sender: FDA-Public Use
  Company Number: 2003-DE-05831ZA

PATIENT
  Age: 40 Year
  Sex: Female

DRUGS (2)
  1. MOBIC [Suspect]
     Indication: MYOSITIS
     Dosage: 15 MG (15 MG, 15 MG/1.5 ML) IM
     Route: 030
     Dates: start: 20031107, end: 20031107
  2. MOBIC [Suspect]
     Indication: PYREXIA
     Dosage: 15 MG (15 MG, 15 MG/1.5 ML) IM
     Route: 030
     Dates: start: 20031107, end: 20031107

REACTIONS (4)
  - CIRCUMORAL OEDEMA [None]
  - FACE OEDEMA [None]
  - PERIORBITAL OEDEMA [None]
  - RASH [None]
